FAERS Safety Report 4300501-0 (Version None)
Quarter: 2004Q1

REPORT INFORMATION
  Report Type: 
  Country: None (occurrence: None)
  Receive Date: 20040217
  Receipt Date: 20040204
  Transmission Date: 20041129
  Serious: Yes (Hospitalization)
  Sender: FDA-Public Use
  Company Number: 151-20785-03060760

PATIENT
  Age: 62 Year
  Sex: Female

DRUGS (4)
  1. THALIDOMIDE (THALIDOMIDE) (UNKNOWN) [Suspect]
     Indication: MULTIPLE MYELOMA
     Dosage: 200 MG, QD
     Dates: start: 20011001, end: 20020401
  2. DEXAMETHASONE [Suspect]
     Dosage: 40 MG, DAILY FOR 4 DAYS TWICE A MONTH
     Dates: start: 20011001
  3. TRIMIPRAMINE MALEATE [Concomitant]
  4. FENTANYL [Concomitant]

REACTIONS (12)
  - ANAEMIA [None]
  - ASTERIXIS [None]
  - ASTHENIA [None]
  - HEPATITIS [None]
  - HEPATOTOXICITY [None]
  - HYPOALBUMINAEMIA [None]
  - INTERNATIONAL NORMALISED RATIO INCREASED [None]
  - MALAISE [None]
  - NEUROPATHY PERIPHERAL [None]
  - PROTHROMBIN TIME PROLONGED [None]
  - PULMONARY EMBOLISM [None]
  - RENAL IMPAIRMENT [None]
